FAERS Safety Report 5943435-8 (Version None)
Quarter: 2008Q4

REPORT INFORMATION
  Report Type: 
  Country: None (occurrence: None)
  Receive Date: 20081106
  Receipt Date: 20081103
  Transmission Date: 20090506
  Serious: Yes (Hospitalization)
  Sender: FDA-Public Use
  Company Number: FR-TEVA-178550ISR

PATIENT
  Sex: Female

DRUGS (2)
  1. CARBOPLATIN [Suspect]
     Route: 042
     Dates: start: 20080417, end: 20080620
  2. CETUXIMAB [Suspect]
     Route: 042
     Dates: start: 20080417, end: 20080620

REACTIONS (2)
  - METASTASES TO MENINGES [None]
  - MYELITIS [None]
